FAERS Safety Report 15500549 (Version 17)
Quarter: 2020Q3

REPORT INFORMATION
  Report Type: Spontaneous
  Country: US (occurrence: US)
  Receive Date: 20181015
  Receipt Date: 20200914
  Transmission Date: 20201102
  Serious: Yes (Hospitalization, Other)
  Sender: FDA-Public Use
  Company Number: US-PFIZER INC-2018418657

PATIENT
  Age: 28 Year
  Sex: Female

DRUGS (76)
  1. DILANTIN [Suspect]
     Active Substance: PHENYTOIN
     Dosage: 100 MG, 3X/DAY
     Route: 048
  2. KLONOPIN [Concomitant]
     Active Substance: CLONAZEPAM
     Indication: AGITATION
     Dosage: 0.5 MG, 3X/DAY (AS NEEDED)
     Route: 048
  3. KLONOPIN [Concomitant]
     Active Substance: CLONAZEPAM
     Indication: ANXIETY
     Dosage: 0.5 MG, 2X/DAY
  4. KLONOPIN [Concomitant]
     Active Substance: CLONAZEPAM
     Indication: PANIC ATTACK
     Dosage: UNK
     Dates: start: 2016
  5. PEPCID [Concomitant]
     Active Substance: FAMOTIDINE
     Dosage: 20 MG, DAILY
     Route: 048
     Dates: start: 20181019
  6. INSULIN?LANTUS [Concomitant]
     Dosage: 0.25 ML (25 UNITS TOTAL), AT BEDTIME
     Route: 058
     Dates: start: 20180419, end: 20180516
  7. FLONASE [Concomitant]
     Active Substance: FLUTICASONE PROPIONATE
     Dosage: UNK
  8. TUMS EX [Concomitant]
     Active Substance: CALCIUM CARBONATE
     Dosage: 1500 MG, 3X/DAY WITH MEALS
     Route: 048
     Dates: start: 20161012, end: 20190109
  9. ZESTRIL [Concomitant]
     Active Substance: LISINOPRIL
     Dosage: 10 MG, DAILY
     Route: 048
     Dates: start: 20181020, end: 20190109
  10. TDAP [Concomitant]
     Active Substance: TETANUS TOXOID, REDUCED DIPHTHERIA TOXOID AND ACELLULAR PERTUSSIS VACCINE ADSORBED, TDAP
     Dosage: UNK
     Dates: start: 20180419
  11. TDAP [Concomitant]
     Active Substance: TETANUS TOXOID, REDUCED DIPHTHERIA TOXOID AND ACELLULAR PERTUSSIS VACCINE ADSORBED, TDAP
     Dosage: UNK
     Route: 030
     Dates: start: 20180526
  12. DILANTIN [Suspect]
     Active Substance: PHENYTOIN
     Indication: EPILEPSY
     Dosage: 200 MG, 2X/DAY
     Route: 048
  13. ZOLOFT [Concomitant]
     Active Substance: SERTRALINE HYDROCHLORIDE
     Dosage: 150 MG, DAILY
  14. ZOLOFT [Concomitant]
     Active Substance: SERTRALINE HYDROCHLORIDE
     Dosage: 100 MG, DAILY
     Route: 048
  15. AZATHIOPRINE. [Concomitant]
     Active Substance: AZATHIOPRINE
     Dosage: 100 MG, 2X/DAY
     Route: 048
  16. CYMBALTA [Concomitant]
     Active Substance: DULOXETINE HYDROCHLORIDE
     Dosage: 30 MG, DAILY
     Route: 048
  17. HUMAN GLOBULIN [Concomitant]
     Dosage: 10 GM/100ML
     Route: 042
  18. ZESTRIL [Concomitant]
     Active Substance: LISINOPRIL
     Dosage: 20 MG, DAILY
     Route: 048
     Dates: start: 20180419, end: 20180816
  19. PNEUMOVAX 23 [Concomitant]
     Active Substance: PNEUMOCOCCAL VACCINE, POLYVALENT 23
     Dosage: 0.5 ML, UNK (25UG/0.5ML)
     Route: 030
     Dates: start: 20180419, end: 20181019
  20. DILANTIN [Suspect]
     Active Substance: PHENYTOIN
     Dosage: 1 DF, 2X/DAY
     Route: 048
  21. DILANTIN [Suspect]
     Active Substance: PHENYTOIN
     Dosage: UNK
     Route: 042
  22. FOLIC ACID. [Concomitant]
     Active Substance: FOLIC ACID
     Dosage: 1 MG, DAILY
     Route: 048
  23. GABAPENTIN. [Concomitant]
     Active Substance: GABAPENTIN
     Indication: PAIN
     Dosage: 200 MG, 3X/DAY
  24. GABAPENTIN. [Concomitant]
     Active Substance: GABAPENTIN
     Indication: PANIC ATTACK
     Dosage: UNK
     Dates: start: 2016
  25. INSULIN?HUMALOG [Concomitant]
     Dosage: UNK
     Dates: start: 20180419, end: 20180516
  26. PRAVASTATIN. [Concomitant]
     Active Substance: PRAVASTATIN
     Indication: BLOOD CHOLESTEROL ABNORMAL
     Dosage: UNK
     Route: 048
     Dates: start: 2016
  27. NEURONTIN [Concomitant]
     Active Substance: GABAPENTIN
     Dosage: 300 MG, 3X/DAY
     Route: 048
     Dates: start: 20180419, end: 20180813
  28. NEURONTIN [Concomitant]
     Active Substance: GABAPENTIN
     Dosage: 100 MG, 3X/DAY
  29. TUMS [Concomitant]
     Active Substance: CALCIUM CARBONATE
     Dosage: 1500 MG, 3X/DAY
     Route: 048
  30. ATIVAN [Concomitant]
     Active Substance: LORAZEPAM
     Dosage: UNK
  31. SYNTHROID [Concomitant]
     Active Substance: LEVOTHYROXINE SODIUM
     Dosage: 0.1 MG, DAILY
     Route: 048
  32. LEVOTHYROXINE. [Concomitant]
     Active Substance: LEVOTHYROXINE
     Indication: THYROID DISORDER
     Dosage: UNK
     Dates: start: 1999
  33. HYDROCODONE [Concomitant]
     Active Substance: HYDROCODONE
     Dosage: UNK
     Dates: start: 2016
  34. HUMAN GLOBULIN [Concomitant]
     Dosage: 5G/50ML
     Route: 042
  35. HUMAN GLOBULIN [Concomitant]
     Dosage: 20GM/200ML
     Route: 042
  36. PRINIVIL [Concomitant]
     Active Substance: LISINOPRIL
     Dosage: 10 MG, DAILY
     Route: 048
     Dates: start: 20181020, end: 20190109
  37. PRAVACHOL [Concomitant]
     Active Substance: PRAVASTATIN SODIUM
     Dosage: 40 MG, DAILY
     Route: 048
     Dates: start: 20180419, end: 20181107
  38. CALCIUM CARBONATE. [Concomitant]
     Active Substance: CALCIUM CARBONATE
     Dosage: 750 MG, DAILY
     Route: 048
  39. PEPCID [Concomitant]
     Active Substance: FAMOTIDINE
     Dosage: 40 MG, DAILY (QHS, EACH NIGHT AT BED TIME)
     Route: 048
  40. ACETAMINOPHEN. [Concomitant]
     Active Substance: ACETAMINOPHEN
     Dosage: 325 MG, UNK
  41. LISINOPRIL. [Concomitant]
     Active Substance: LISINOPRIL
     Indication: RENAL DISORDER
     Dosage: UNK
     Dates: start: 2016
  42. IMURAN [Concomitant]
     Active Substance: AZATHIOPRINE
     Dosage: 50 MG, 2X/DAY
     Route: 048
  43. HUMAN GLOBULIN [Concomitant]
     Dosage: UNK
     Route: 042
  44. METAMUCIL [Concomitant]
     Active Substance: PLANTAGO SEED
     Dosage: UNK, 3X/DAY
     Route: 048
  45. ADACEL TDAP [Concomitant]
     Active Substance: TETANUS TOXOID, REDUCED DIPHTHERIA TOXOID AND ACELLULAR PERTUSSIS VACCINE ADSORBED, TDAP
     Dosage: UNK, ONCE
     Route: 030
  46. KLONOPIN [Concomitant]
     Active Substance: CLONAZEPAM
     Dosage: 0.25 MG, DAILY
  47. GABAPENTIN. [Concomitant]
     Active Substance: GABAPENTIN
     Indication: ANXIETY
     Dosage: 100 MG, 2X/DAY
     Route: 048
  48. INSULIN?HUMALOG [Concomitant]
     Indication: DIABETES MELLITUS
     Dosage: 3X/DAY (BEFORE MEALS)
     Route: 058
     Dates: start: 2016
  49. LEVETIRACETAM. [Concomitant]
     Active Substance: LEVETIRACETAM
     Dosage: 500 MG, 2X/DAY
     Route: 048
  50. SYNTHROID [Concomitant]
     Active Substance: LEVOTHYROXINE SODIUM
     Dosage: 50 UG, DAILY
     Route: 048
     Dates: start: 20180420, end: 20180516
  51. AZATHIOPRINE. [Concomitant]
     Active Substance: AZATHIOPRINE
     Dosage: UNK
     Dates: start: 2016
  52. GAMUNEX?C [Concomitant]
     Active Substance: HUMAN IMMUNOGLOBULIN G
     Dosage: UNK
     Dates: start: 2016
  53. KEPPRA [Concomitant]
     Active Substance: LEVETIRACETAM
     Indication: EPILEPSY
     Dosage: UNK
     Dates: start: 2016
  54. PRINIVIL [Concomitant]
     Active Substance: LISINOPRIL
     Dosage: 20 MG, DAILY
     Route: 048
     Dates: start: 20180419, end: 20180816
  55. LASIX [Concomitant]
     Active Substance: FUROSEMIDE
     Dosage: 20 MG, 2X/DAY
     Route: 048
  56. PRAVASTATIN. [Concomitant]
     Active Substance: PRAVASTATIN
     Dosage: 40 MG, DAILY
     Route: 048
  57. ZIPRASIDONE. [Concomitant]
     Active Substance: ZIPRASIDONE
     Dosage: 10 MG, (EVERY 6 HOURS)
     Route: 030
  58. GAMUNEX [Concomitant]
     Active Substance: HUMAN IMMUNOGLOBULIN G
     Dosage: 1000 MG/KG, EVERY 4 WEEKS
     Route: 042
  59. KEPPRA [Concomitant]
     Active Substance: LEVETIRACETAM
     Dosage: 500 MG, 2X/DAY
     Route: 048
  60. LISINOPRIL. [Concomitant]
     Active Substance: LISINOPRIL
     Indication: BLOOD PRESSURE ABNORMAL
     Dosage: 20 MG, DAILY (1 TABLET)
     Route: 048
  61. CARIMUNE NF [Concomitant]
     Active Substance: HUMAN IMMUNOGLOBULIN G
     Dosage: 12 G, EVERY 30 DAYS
     Route: 042
  62. DILANTIN [Suspect]
     Active Substance: PHENYTOIN
     Dosage: UNK
     Dates: start: 1999, end: 2016
  63. INSULIN?LANTUS [Concomitant]
     Indication: DIABETES MELLITUS
     Dosage: 25 UNITS, DAILY (QHS, EACH NIGHT AT BED TIME)
     Route: 058
     Dates: start: 2016
  64. LEVOTHYROXINE. [Concomitant]
     Active Substance: LEVOTHYROXINE
     Dosage: 25 UG, DAILY
     Route: 048
  65. RISPERDAL [Concomitant]
     Active Substance: RISPERIDONE
     Dosage: 1 MG, AT BED TIME
     Route: 048
  66. HUMAN GLOBULIN [Concomitant]
     Dosage: UNK
     Route: 042
  67. TUMS EX [Concomitant]
     Active Substance: CALCIUM CARBONATE
     Dosage: 2 DF, 3X/DAY
     Route: 048
     Dates: end: 20180613
  68. PNEUMOVAX 23 [Concomitant]
     Active Substance: PNEUMOCOCCAL VACCINE, POLYVALENT 23
     Dosage: UNK
     Dates: start: 20180419
  69. NEURONTIN [Concomitant]
     Active Substance: GABAPENTIN
     Dosage: 10 DF, DAILY (3 CAPSULES IN MORNING, 3 CAPSULES IN AFTERNOON AND 4 CAPSULES IN BEDTIME)
     Route: 048
  70. SERTRALINE [Concomitant]
     Active Substance: SERTRALINE HYDROCHLORIDE
     Dosage: 100 MG, DAILY
     Route: 048
  71. LEVOTHYROXINE. [Concomitant]
     Active Substance: LEVOTHYROXINE
     Dosage: 100 UG, DAILY
     Route: 048
  72. NORCO [Concomitant]
     Active Substance: ACETAMINOPHEN\HYDROCODONE BITARTRATE
     Dosage: UNK, AS NEEDED (5?325 MG, EVERY 6 HOURS)
  73. AZATHIOPRINE. [Concomitant]
     Active Substance: AZATHIOPRINE
     Dosage: 50 MG, 2X/DAY
     Route: 048
  74. CYMBALTA [Concomitant]
     Active Substance: DULOXETINE HYDROCHLORIDE
     Dosage: 60 MG, UNK
  75. HUMAN GLOBULIN [Concomitant]
     Dosage: 40GM/400ML
     Route: 042
  76. RISPERIDONE. [Concomitant]
     Active Substance: RISPERIDONE
     Dosage: 1 MG, DAILY (QHS EACH NIGHT AT BED TIME)
     Route: 048

REACTIONS (31)
  - Ataxia [Not Recovered/Not Resolved]
  - Osteoarthritis [Unknown]
  - Diabetic foot infection [Recovered/Resolved]
  - Cerebellar atrophy [Unknown]
  - Neuropathy peripheral [Not Recovered/Not Resolved]
  - Decreased appetite [Unknown]
  - Dysarthria [Recovered/Resolved]
  - Myositis [Unknown]
  - Stiff person syndrome [Not Recovered/Not Resolved]
  - Muscle spasms [Unknown]
  - Muscular weakness [Not Recovered/Not Resolved]
  - Hip fracture [Not Recovered/Not Resolved]
  - Gliosis [Unknown]
  - Joint injury [Not Recovered/Not Resolved]
  - Skin ulcer [Unknown]
  - Anxiety [Unknown]
  - Osteomyelitis [Unknown]
  - Dysstasia [Not Recovered/Not Resolved]
  - Drug hypersensitivity [Unknown]
  - Tremor [Not Recovered/Not Resolved]
  - Amnesia [Not Recovered/Not Resolved]
  - Cerebellar ataxia [Unknown]
  - Cerebral infarction [Unknown]
  - Fall [Unknown]
  - Diabetic foot [Unknown]
  - Gait disturbance [Not Recovered/Not Resolved]
  - Coordination abnormal [Not Recovered/Not Resolved]
  - Depression [Unknown]
  - Encephalomalacia [Unknown]
  - Cellulitis [Unknown]
  - Balance disorder [Not Recovered/Not Resolved]

NARRATIVE: CASE EVENT DATE: 20130301
